FAERS Safety Report 9387598 (Version 1)
Quarter: 2013Q3

REPORT INFORMATION
  Report Type: Spontaneous
  Country: BR (occurrence: BR)
  Receive Date: 20130708
  Receipt Date: 20130708
  Transmission Date: 20140515
  Serious: Yes (Other)
  Sender: FDA-Public Use
  Company Number: PHHY2013BR071874

PATIENT
  Sex: Female

DRUGS (2)
  1. RITALIN LA [Suspect]
  2. RITALIN [Suspect]
     Dosage: UNK UKN, UNK

REACTIONS (5)
  - Depression [Unknown]
  - Disturbance in attention [Unknown]
  - Irritability [Unknown]
  - Impulsive behaviour [Unknown]
  - Performance status decreased [Unknown]
